FAERS Safety Report 10160651 (Version 1)
Quarter: 2014Q2

REPORT INFORMATION
  Report Type: Spontaneous
  Country: JP (occurrence: JP)
  Receive Date: 20140508
  Receipt Date: 20140508
  Transmission Date: 20141212
  Serious: Yes (Life-Threatening, Hospitalization, Other)
  Sender: FDA-Public Use
  Company Number: JP-BAYER-2014-065584

PATIENT
  Age: 64 Year
  Sex: Female

DRUGS (12)
  1. IOPROMIDE 300 [Suspect]
     Indication: CARDIAC VALVE DISEASE
     Dosage: 100 ML, ONCE
     Route: 042
     Dates: start: 20140411, end: 20140411
  2. IOPROMIDE 300 [Suspect]
     Indication: ANGINA PECTORIS
  3. IOPROMIDE 300 [Suspect]
     Indication: COMPUTERISED TOMOGRAM ABDOMEN
  4. IOPROMIDE 300 [Suspect]
     Indication: COMPUTERISED TOMOGRAM THORAX
  5. IOPROMIDE 300 [Suspect]
     Indication: CATHETERISATION CARDIAC
  6. AMLODIPINE BESILATE [Concomitant]
     Indication: HYPERTENSION
     Dosage: 5 MG, QD
     Dates: end: 20140411
  7. AMLODIPINE BESILATE [Concomitant]
     Indication: HYPERTENSION
     Dosage: 5 MG, QD
  8. LOSARTAN POTASSIUM [Concomitant]
     Indication: HYPERTENSION
     Dosage: 50 MG, UNK
     Dates: end: 20140411
  9. TRIPAMIDE [Concomitant]
     Indication: HYPERTENSION
     Dosage: 7.5 MG, QD
  10. ESOMEPRAZOLE [Concomitant]
     Indication: GASTRODUODENAL ULCER
     Dosage: 20 MG, QD
  11. FUROSEMIDE [Concomitant]
     Indication: CARDIAC FAILURE CONGESTIVE
     Dosage: 20 MG, UNK
  12. SPIRONOLACTONE [Concomitant]
     Indication: CARDIAC FAILURE CONGESTIVE
     Dosage: 25 MG, QD

REACTIONS (6)
  - Blood pressure decreased [Recovered/Resolved]
  - Pyrexia [Recovered/Resolved]
  - Vomiting [Recovered/Resolved]
  - Nausea [Recovered/Resolved]
  - Blood creatinine increased [Recovered/Resolved]
  - Platelet count decreased [Recovered/Resolved]
